FAERS Safety Report 21584701 (Version 1)
Quarter: 2022Q4

REPORT INFORMATION
  Report Type: Spontaneous
  Country: US (occurrence: None)
  Receive Date: 20221110
  Receipt Date: 20221110
  Transmission Date: 20230112
  Serious: No
  Sender: FDA-Public Use
  Company Number: None

PATIENT
  Age: 38 Year
  Sex: Female
  Weight: 103.5 kg

DRUGS (2)
  1. CIPROFLOXACIN HYDROCHLORIDE\DEXAMETHASONE [Suspect]
     Active Substance: CIPROFLOXACIN HYDROCHLORIDE\DEXAMETHASONE
     Dosage: OTHER QUANTITY : 4 DROP(S);?FREQUENCY : TWICE A DAY;?
     Route: 001
     Dates: start: 20221107, end: 20221110
  2. Mary Ruths liquid vitamin [Concomitant]

REACTIONS (4)
  - Hypoaesthesia [None]
  - Paraesthesia [None]
  - Paraesthesia [None]
  - Paraesthesia [None]

NARRATIVE: CASE EVENT DATE: 20221110
